FAERS Safety Report 6221126-6 (Version None)
Quarter: 2009Q2

REPORT INFORMATION
  Report Type: 
  Country: None (occurrence: None)
  Receive Date: 20090610
  Receipt Date: 20090610
  Transmission Date: 20091009
  Serious: Yes (Other)
  Sender: FDA-Public Use
  Company Number: B0578113A

PATIENT
  Sex: Male

DRUGS (3)
  1. PAROXETINE HCL [Suspect]
     Indication: MAJOR DEPRESSION
     Dosage: 40MG PER DAY
     Route: 048
     Dates: start: 20050326, end: 20090301
  2. EFFEXOR [Suspect]
     Indication: MAJOR DEPRESSION
     Dosage: 125MG PER DAY
     Route: 048
     Dates: start: 20010616, end: 20050326
  3. SERESTA [Concomitant]
     Indication: MAJOR DEPRESSION
     Route: 048
     Dates: start: 20050101

REACTIONS (3)
  - BACK PAIN [None]
  - OSTEOPOROSIS [None]
  - SPINAL COMPRESSION FRACTURE [None]
